FAERS Safety Report 4841842-8 (Version None)
Quarter: 2005Q4

REPORT INFORMATION
  Report Type: 
  Country: None (occurrence: None)
  Receive Date: 20051130
  Receipt Date: 20051121
  Transmission Date: 20060501
  Serious: Yes (Congenital Anomaly)
  Sender: FDA-Public Use
  Company Number: PHFR2005GB03808

PATIENT
  Sex: Male

DRUGS (2)
  1. VALSARTAN [Suspect]
     Dosage: UNK, UNK
     Route: 064
     Dates: start: 20040101, end: 20050506
  2. BENDROFLUAZIDE [Concomitant]
     Route: 064

REACTIONS (2)
  - CRYPTORCHISM [None]
  - DRUG EXPOSURE DURING PREGNANCY [None]
